FAERS Safety Report 9102264 (Version 1)
Quarter: 2013Q1

REPORT INFORMATION
  Report Type: Spontaneous
  Country: US (occurrence: US)
  Receive Date: 20130218
  Receipt Date: 20130218
  Transmission Date: 20140127
  Serious: Yes (Death)
  Sender: FDA-Public Use
  Company Number: US-COVIDIEN/TYCO HEALTHCARE/MALLINCKRODT-T201300711

PATIENT
  Age: 60 Year
  Sex: Female

DRUGS (13)
  1. ROXICODONE [Suspect]
     Dosage: UNK
     Route: 048
  2. FLUOXETINE [Suspect]
  3. TIZANIDINE [Suspect]
  4. AMLODIPINE [Suspect]
  5. ARIPIPRAZOLE [Suspect]
  6. HYDROCODONE [Suspect]
  7. AMITRIPTYLINE [Suspect]
  8. ZOLPIDEM [Suspect]
  9. HYOSCYAMINE [Suspect]
  10. HYDROCHLOROTHIAZIDE [Suspect]
  11. SIMVASTATIN [Suspect]
  12. SUMATRIPTAN [Suspect]
  13. ACETAMINOPHEN [Suspect]

REACTIONS (2)
  - Completed suicide [Fatal]
  - Cardio-respiratory arrest [Fatal]
